FAERS Safety Report 5290051-X (Version None)
Quarter: 2007Q1

REPORT INFORMATION
  Report Type: 
  Country: None (occurrence: None)
  Receive Date: 20070330
  Receipt Date: 20070322
  Transmission Date: 20070707
  Serious: Yes (Hospitalization)
  Sender: FDA-Public Use
  Company Number: 2007AL001189

PATIENT
  Age: 36 Year
  Sex: Female

DRUGS (2)
  1. FLUOXETINE [Suspect]
  2. AMITRIPTYLINE HCL [Concomitant]

REACTIONS (2)
  - BLOOD CREATININE INCREASED [None]
  - OVERDOSE [None]
